FAERS Safety Report 9513103 (Version 2)
Quarter: 2013Q4

REPORT INFORMATION
  Report Type: Spontaneous
  Country: JP (occurrence: JP)
  Receive Date: 20130910
  Receipt Date: 20131024
  Transmission Date: 20140711
  Serious: Yes (Hospitalization, Other)
  Sender: FDA-Public Use
  Company Number: JP-BAXTER-2013BAX034748

PATIENT
  Age: 70 Year
  Sex: Male
  Weight: 63.8 kg

DRUGS (57)
  1. DIANEAL-N PD-4 1.5 [Suspect]
     Indication: RENAL FAILURE CHRONIC
     Route: 033
  2. DIANEAL-N PD-4 2.5 [Suspect]
     Indication: RENAL FAILURE CHRONIC
     Route: 033
  3. EXTRANEAL PD SOLUTION [Suspect]
     Indication: RENAL FAILURE CHRONIC
     Route: 033
     Dates: start: 20120425, end: 20121109
  4. EXTRANEAL PD SOLUTION [Suspect]
     Route: 033
     Dates: start: 20121231, end: 20130102
  5. AMLODIPINE [Concomitant]
     Indication: HYPERTENSION
     Route: 048
     Dates: start: 20120401, end: 20121122
  6. SODIUM BICARBONATE [Concomitant]
     Indication: METABOLIC ACIDOSIS
     Route: 048
     Dates: start: 20120401, end: 20120413
  7. SODIUM BICARBONATE [Concomitant]
     Route: 048
     Dates: start: 20120414, end: 20120517
  8. CARDENALIN [Concomitant]
     Indication: HYPERTENSION
     Route: 048
     Dates: start: 20120401, end: 20120415
  9. DOXAZOSIN [Concomitant]
     Indication: HYPERTENSION
     Route: 048
     Dates: start: 20120414, end: 20121108
  10. FLUITRAN [Concomitant]
     Indication: HYPERTENSION
     Route: 048
     Dates: start: 20120401, end: 20120419
  11. FLUITRAN [Concomitant]
     Route: 048
     Dates: start: 20121127
  12. PRERAN [Concomitant]
     Indication: HYPERTENSION
     Route: 048
     Dates: start: 20120401, end: 20120415
  13. PRERAN [Concomitant]
     Route: 048
     Dates: start: 20120416, end: 20121122
  14. ZYLORIC [Concomitant]
     Indication: HYPERURICAEMIA
     Route: 048
     Dates: start: 20120401, end: 20120413
  15. ZYLORIC [Concomitant]
     Route: 048
     Dates: start: 20120414, end: 20121108
  16. CALBLOCK [Concomitant]
     Indication: HYPERTENSION
     Route: 048
     Dates: start: 20120401, end: 20121122
  17. CALBLOCK [Concomitant]
     Route: 048
     Dates: start: 20121206
  18. MEVALOTIN [Concomitant]
     Indication: HYPERCHOLESTEROLAEMIA
     Route: 048
     Dates: start: 20120414, end: 20120808
  19. ALESION [Concomitant]
     Indication: PRURITUS
     Route: 048
     Dates: start: 20120401, end: 20120413
  20. ALESION [Concomitant]
     Route: 048
     Dates: start: 20120414
  21. KREMEZIN [Concomitant]
     Indication: AZOTAEMIA
     Route: 048
     Dates: start: 20120401, end: 20120416
  22. ARGAMATE [Concomitant]
     Indication: HYPERKALAEMIA
     Route: 048
     Dates: start: 20120404, end: 20120610
  23. DIART [Concomitant]
     Indication: OEDEMA DUE TO RENAL DISEASE
     Route: 048
     Dates: start: 20120401, end: 20120415
  24. DIART [Concomitant]
     Route: 048
     Dates: start: 20121109, end: 20121110
  25. DIART [Concomitant]
     Route: 048
     Dates: start: 20121111
  26. DIART [Concomitant]
     Route: 048
     Dates: start: 20120414, end: 20121108
  27. SENOSIDE [Concomitant]
     Indication: CONSTIPATION
     Route: 048
     Dates: start: 20120404, end: 20120409
  28. SENOSIDE [Concomitant]
     Indication: INVESTIGATION
     Route: 048
     Dates: start: 20120416, end: 20120419
  29. SENOSIDE [Concomitant]
     Route: 048
     Dates: start: 20120703, end: 20120703
  30. CALONAL [Concomitant]
     Route: 048
     Dates: start: 20120417, end: 20120417
  31. CALONAL [Concomitant]
     Route: 048
     Dates: start: 20120521, end: 20120521
  32. CARTARETIN [Concomitant]
     Indication: HYPERPHOSPHATAEMIA
     Route: 048
     Dates: start: 20120420, end: 20121129
  33. LASIX [Concomitant]
     Indication: OEDEMA DUE TO RENAL DISEASE
     Route: 048
     Dates: start: 20120422
  34. TEPRENONE [Concomitant]
     Indication: GASTRITIS
     Route: 048
     Dates: start: 20120422
  35. NIFPLUS [Concomitant]
     Indication: INVESTIGATION
     Route: 048
     Dates: start: 20120704, end: 20120704
  36. CEFZON [Concomitant]
     Indication: RESPIRATORY TRACT INFECTION
     Route: 048
     Dates: start: 20120723, end: 20120727
  37. CEFZON [Concomitant]
     Route: 048
     Dates: start: 20121224, end: 20121225
  38. CEFZON [Concomitant]
     Route: 048
     Dates: start: 20130103, end: 20130104
  39. BIOFERMIN R [Concomitant]
     Indication: ENTEROCOLITIS
     Route: 048
     Dates: start: 20130723, end: 20130727
  40. LACTOMIN [Concomitant]
     Indication: ENTEROCOLITIS
     Route: 048
     Dates: start: 20121231
  41. MUCOTRON [Concomitant]
     Indication: COUGH
     Route: 048
     Dates: start: 20120809
  42. MUCOSAL [Concomitant]
     Indication: COUGH
     Route: 048
     Dates: start: 20120809
  43. FLOMOX [Concomitant]
     Indication: RESPIRATORY TRACT INFECTION
     Route: 048
     Dates: start: 20120913, end: 20120916
  44. LOXOPROFEN [Concomitant]
     Indication: PAIN
     Route: 048
     Dates: start: 20121017, end: 20121017
  45. LOXOPROFEN [Concomitant]
     Route: 048
     Dates: start: 20121118, end: 20121118
  46. SORENTMIN [Concomitant]
     Indication: INSOMNIA
     Route: 048
     Dates: start: 20121017, end: 20121017
  47. NITROPEN [Concomitant]
     Indication: ANGINA PECTORIS
     Route: 048
     Dates: start: 20121026, end: 20121026
  48. TRANSAMIN [Concomitant]
     Indication: PERITONEAL DIALYSIS COMPLICATION
     Route: 048
     Dates: start: 20121112
  49. BUSCOPAN [Concomitant]
     Indication: ABDOMINAL PAIN
     Route: 048
     Dates: start: 20121226, end: 20121226
  50. DIACORT [Concomitant]
     Indication: ECZEMA
     Dates: start: 20121127
  51. DIACORT [Concomitant]
     Route: 058
     Dates: start: 20121206
  52. FELBINAC [Concomitant]
     Indication: BACK PAIN
     Dates: start: 20130104
  53. NESP [Concomitant]
     Indication: NEPHROGENIC ANAEMIA
     Dates: start: 20120420
  54. PENTAZOCINE [Concomitant]
     Indication: PAIN
     Dates: start: 20120416, end: 20120416
  55. ATARAX-P [Concomitant]
     Indication: PAIN
     Dates: start: 20120416, end: 20120416
  56. PRIMPERAN [Concomitant]
     Indication: NAUSEA
     Dates: start: 20121029, end: 20121029
  57. PRIMPERAN [Concomitant]
     Dates: start: 20121112, end: 20121112

REACTIONS (5)
  - Eosinophilia [Recovered/Resolved]
  - Peritonitis [Recovered/Resolved]
  - Catheter site infection [Recovered/Resolved]
  - Fluid retention [Recovered/Resolved]
  - Catheter site inflammation [Recovered/Resolved]
